FAERS Safety Report 6342337-5 (Version None)
Quarter: 2009Q3

REPORT INFORMATION
  Report Type: 
  Country: None (occurrence: None)
  Receive Date: 20090907
  Receipt Date: 20090824
  Transmission Date: 20100115
  Serious: Yes (Other)
  Sender: FDA-Public Use
  Company Number: TW-PFIZER INC-2008024769

PATIENT

DRUGS (1)
  1. DOSTINEX [Suspect]
     Indication: PROLACTINOMA
     Route: 064
     Dates: end: 20080307

REACTIONS (2)
  - DRUG EXPOSURE DURING PREGNANCY [None]
  - PREMATURE BABY [None]
